FAERS Safety Report 7674896-4 (Version None)
Quarter: 2011Q3

REPORT INFORMATION
  Report Type: 
  Country: None (occurrence: None)
  Receive Date: 20110810
  Receipt Date: 20110727
  Transmission Date: 20111222
  Serious: Yes (Other)
  Sender: FDA-Public Use
  Company Number: US-ELI_LILLY_AND_COMPANY-US201107007943

PATIENT

DRUGS (2)
  1. CYMBALTA [Suspect]
     Dosage: 20 MG, QD
     Dates: start: 20060221
  2. LYRICA [Concomitant]
     Dosage: 75 MG, BID
     Dates: start: 20060221

REACTIONS (1)
  - STEVENS-JOHNSON SYNDROME [None]
